FAERS Safety Report 9028174 (Version 1)
Quarter: 2013Q1

REPORT INFORMATION
  Report Type: Spontaneous
  Country: FR (occurrence: FR)
  Receive Date: 20130123
  Receipt Date: 20130123
  Transmission Date: 20140127
  Serious: Yes (Hospitalization)
  Sender: FDA-Public Use
  Company Number: FR-009507513-1301FRA008310

PATIENT
  Age: 67 Year
  Sex: Female

DRUGS (5)
  1. CELESTENE 4MG/1ML [Suspect]
     Indication: PREMEDICATION
     Dosage: 1 DF, ONCE
     Route: 040
     Dates: start: 20121009, end: 20121009
  2. OPTIRAY [Suspect]
     Indication: PREMEDICATION
     Dosage: 1 DF, ONCE
     Route: 040
     Dates: start: 20121010, end: 20121010
  3. CELESTAMINE [Concomitant]
     Indication: PREMEDICATION
     Dosage: UNK
     Route: 048
     Dates: start: 20121009
  4. ATARAX (HYDROXYZINE HYDROCHLORIDE) [Concomitant]
     Indication: PREMEDICATION
     Dosage: UNK
     Route: 048
     Dates: start: 20121009
  5. EXACYL [Concomitant]
     Indication: PREMEDICATION
     Dosage: UNK
     Route: 048
     Dates: start: 20121009

REACTIONS (1)
  - Acute generalised exanthematous pustulosis [Recovered/Resolved]
